FAERS Safety Report 5396570-X (Version None)
Quarter: 2007Q3

REPORT INFORMATION
  Report Type: 
  Country: None (occurrence: None)
  Receive Date: 20070718
  Receipt Date: 20061106
  Transmission Date: 20080115
  Serious: Yes (Hospitalization)
  Sender: FDA-Public Use
  Company Number: 2006141505

PATIENT
  Sex: Male

DRUGS (1)
  1. CELEBREX [Suspect]
     Dosage: ORAL
     Route: 048
     Dates: start: 20010119, end: 20021012

REACTIONS (3)
  - DEEP VEIN THROMBOSIS [None]
  - MYOCARDIAL INFARCTION [None]
  - PULMONARY EMBOLISM [None]
